FAERS Safety Report 8806149 (Version 1)
Quarter: 2012Q4

REPORT INFORMATION
  Report Type: Spontaneous
  Country: US (occurrence: None)
  Receive Date: 20120917
  Receipt Date: 20120917
  Transmission Date: 20130627
  Serious: Yes (Hospitalization)
  Sender: FDA-Public Use
  Company Number: DSA_59537_2012

PATIENT
  Age: 71 Year
  Sex: Female

DRUGS (2)
  1. XENAZINE 12.5 MG (NOT SPECIFIED) [Suspect]
     Indication: MALIGNANT NEOPLASM OF PLACENTA
     Route: 048
     Dates: start: 20120529, end: 201208
  2. XENAZINE 12.5 MG (NOT SPECIFIED) [Suspect]
     Indication: MALIGNANT NEOPLASM OF PLACENTA
     Route: 048
     Dates: start: 201208, end: 20120910

REACTIONS (1)
  - Surgery [None]
